FAERS Safety Report 18570370 (Version 1)
Quarter: 2020Q4

REPORT INFORMATION
  Report Type: Report from Study
  Country: US (occurrence: US)
  Receive Date: 20201202
  Receipt Date: 20201202
  Transmission Date: 20210114
  Serious: Yes (Other)
  Sender: FDA-Public Use
  Company Number: US-GW PHARMA-201809USGW0386

PATIENT

DRUGS (13)
  1. ZONEGRAN [Concomitant]
     Active Substance: ZONISAMIDE
     Indication: TUBEROUS SCLEROSIS COMPLEX
     Dosage: 200 MILLIGRAM, BID
     Route: 048
     Dates: start: 20180402
  2. BENADRYL [Concomitant]
     Active Substance: DIPHENHYDRAMINE HYDROCHLORIDE
     Indication: SEASONAL ALLERGY
     Dosage: 25 MILLIGRAM, QD, QHS
     Route: 048
     Dates: start: 20150421, end: 20180914
  3. VIMPAT [Concomitant]
     Active Substance: LACOSAMIDE
     Indication: TUBEROUS SCLEROSIS COMPLEX
     Dosage: 150 MILLIGRAM, BID
     Route: 048
     Dates: start: 20170717
  4. ZYRTEC [Concomitant]
     Active Substance: CETIRIZINE HYDROCHLORIDE
     Indication: SEASONAL ALLERGY
     Dosage: 10 MILLIGRAM, QD
     Route: 048
     Dates: start: 20130325
  5. VITAMIN B [Concomitant]
     Active Substance: VITAMIN B
     Indication: SUPPLEMENTATION THERAPY
     Dosage: 1 DOSAGE FORM, QD
     Route: 048
     Dates: start: 20130325
  6. MIRALAX [Concomitant]
     Active Substance: POLYETHYLENE GLYCOL 3350
     Indication: CONSTIPATION
     Dosage: 1 DOSAGE FORM, PRN
     Route: 048
     Dates: start: 2017
  7. TYLENOL [Concomitant]
     Active Substance: ACETAMINOPHEN
     Indication: HEADACHE
     Dosage: 500 MILLIGRAM, PRN
     Route: 048
     Dates: start: 20150303
  8. FLONASE [Concomitant]
     Active Substance: FLUTICASONE PROPIONATE
     Indication: SEASONAL ALLERGY
     Dosage: 1 ACTUATION, PRN
     Route: 045
     Dates: start: 20180602
  9. TRAMADOL. [Concomitant]
     Active Substance: TRAMADOL
     Indication: ANXIETY
     Dosage: 25 MILLIGRAM, BID
     Route: 048
     Dates: start: 20180514
  10. PROZAC [Concomitant]
     Active Substance: FLUOXETINE HYDROCHLORIDE
     Indication: ANXIETY
     Dosage: 80 MILLIGRAM, QD
     Route: 048
     Dates: start: 20160921
  11. MELATONIN [Concomitant]
     Active Substance: MELATONIN
     Indication: INSOMNIA
     Dosage: 1 DOSAGE FORM, QD, QHS
     Route: 048
     Dates: start: 20160127
  12. EPIDIOLEX [Suspect]
     Active Substance: CANNABIDIOL
     Indication: TUBEROUS SCLEROSIS COMPLEX
     Dosage: 25 MG/KG, 1195 MILLIGRAM, QD
     Route: 048
     Dates: start: 20180906, end: 20180917
  13. VITAMINS NOS [Concomitant]
     Active Substance: VITAMINS
     Indication: SUPPLEMENTATION THERAPY
     Dosage: 1 DOSAGE FORM, QD
     Route: 048
     Dates: start: 20110201

REACTIONS (2)
  - Type IV hypersensitivity reaction [Recovered/Resolved]
  - Rash [Recovered/Resolved]

NARRATIVE: CASE EVENT DATE: 20180914
